FAERS Safety Report 25058152 (Version 2)
Quarter: 2025Q1

REPORT INFORMATION
  Report Type: Spontaneous
  Country: US (occurrence: US)
  Receive Date: 20250310
  Receipt Date: 20250317
  Transmission Date: 20250409
  Serious: No
  Sender: GLAXOSMITHKLINE
  Company Number: US-GSK-US2025027963

PATIENT
  Age: 17 Year
  Sex: Male

DRUGS (1)
  1. BENLYSTA [Suspect]
     Active Substance: BELIMUMAB
     Indication: Product used for unknown indication
     Dates: start: 20250305

REACTIONS (3)
  - Wrong technique in device usage process [Unknown]
  - Underdose [Unknown]
  - Product complaint [Unknown]

NARRATIVE: CASE EVENT DATE: 20250305
